FAERS Safety Report 5665034-8 (Version None)
Quarter: 2008Q1

REPORT INFORMATION
  Report Type: 
  Country: None (occurrence: None)
  Receive Date: 20080314
  Receipt Date: 20080304
  Transmission Date: 20080703
  Serious: Yes (Hospitalization)
  Sender: FDA-Public Use
  Company Number: FR-PFIZER INC-2008020674

PATIENT
  Sex: Male

DRUGS (5)
  1. NEURONTIN [Suspect]
     Route: 048
  2. PROZAC [Concomitant]
     Route: 048
  3. RIVOTRIL [Concomitant]
     Route: 048
  4. IRBESARTAN [Concomitant]
     Route: 048
  5. EZETROL [Concomitant]
     Route: 048

REACTIONS (4)
  - CEREBELLAR SYNDROME [None]
  - DISORIENTATION [None]
  - GAIT DISTURBANCE [None]
  - SOMNOLENCE [None]
